FAERS Safety Report 5682173-6 (Version None)
Quarter: 2008Q1

REPORT INFORMATION
  Report Type: 
  Country: None (occurrence: None)
  Receive Date: 20080325
  Receipt Date: 20080311
  Transmission Date: 20080703
  Serious: Yes (Other)
  Sender: FDA-Public Use
  Company Number: 2008023346

PATIENT
  Age: 68 Year
  Sex: Female

DRUGS (2)
  1. FRAGMIN [Suspect]
     Indication: THROMBOSIS PROPHYLAXIS
  2. ZOLOFT [Concomitant]

REACTIONS (2)
  - HEPATIC FUNCTION ABNORMAL [None]
  - JAUNDICE [None]
